FAERS Safety Report 20503407 (Version 1)
Quarter: 2022Q1

REPORT INFORMATION
  Report Type: Spontaneous
  Country: DE (occurrence: DE)
  Receive Date: 20220222
  Receipt Date: 20220222
  Transmission Date: 20220423
  Serious: Yes (Other)
  Sender: FDA-Public Use
  Company Number: DE-BoehringerIngelheim-2022-BI-154413

PATIENT
  Age: 57 Year
  Sex: Male

DRUGS (9)
  1. NINTEDANIB [Suspect]
     Active Substance: NINTEDANIB
     Indication: Interstitial lung disease
     Dates: start: 202008
  2. ASPIRIN [Concomitant]
     Active Substance: ASPIRIN
     Indication: Product used for unknown indication
  3. BISOPROLOL [Concomitant]
     Active Substance: BISOPROLOL
     Indication: Product used for unknown indication
  4. Candesartan plus 16/12.5 mg [Concomitant]
     Indication: Product used for unknown indication
     Dosage: STRENGTH: 16/12.5 MG?SINCE 5 YEARS PART OF THE THERAPY
  5. SIMVASTATIN [Concomitant]
     Active Substance: SIMVASTATIN
     Indication: Product used for unknown indication
  6. Testosterongel [Concomitant]
     Indication: Product used for unknown indication
     Dosage: GEL
  7. Beclomethason Autohaler 100 mcg [Concomitant]
     Indication: Product used for unknown indication
     Dosage: 2 PUFF
  8. ALBUTEROL [Concomitant]
     Active Substance: ALBUTEROL
     Indication: Product used for unknown indication
  9. OXYGEN [Concomitant]
     Active Substance: OXYGEN
     Indication: Product used for unknown indication
     Dosage: MOBILE UNIT, DURING THE FURTHER COURSE STATIONARY SYSTEM
     Dates: start: 202007

REACTIONS (5)
  - Pulmonary embolism [Unknown]
  - Dyspnoea [Unknown]
  - Stenosis [Unknown]
  - Carotid artery stenosis [Unknown]
  - Interstitial lung disease [Unknown]

NARRATIVE: CASE EVENT DATE: 20201101
